FAERS Safety Report 14775558 (Version 2)
Quarter: 2018Q2

REPORT INFORMATION
  Report Type: Spontaneous
  Country: US (occurrence: US)
  Receive Date: 20180418
  Receipt Date: 20180418
  Transmission Date: 20180711
  Serious: Yes (Death, Hospitalization, Other)
  Sender: FDA-Public Use
  Company Number: PHEH2018US014667

PATIENT
  Sex: Female
  Weight: 17 kg

DRUGS (10)
  1. ILARIS [Suspect]
     Active Substance: CANAKINUMAB
     Dosage: 135 MG, Q4W
     Route: 065
  2. ANAKINRA [Suspect]
     Active Substance: ANAKINRA
     Indication: ANAEMIA
  3. CICLOSPORIN [Suspect]
     Active Substance: CYCLOSPORINE
     Indication: PRODUCT USED FOR UNKNOWN INDICATION
     Dosage: UNK
     Route: 065
  4. ANAKINRA [Suspect]
     Active Substance: ANAKINRA
     Indication: SERUM FERRITIN INCREASED
     Dosage: UNK
     Route: 065
     Dates: start: 2009
  5. ANAKINRA [Suspect]
     Active Substance: ANAKINRA
     Indication: THROMBOCYTOPENIA
  6. PREDNISOLONE. [Concomitant]
     Active Substance: PREDNISOLONE
     Indication: PRODUCT USED FOR UNKNOWN INDICATION
     Dosage: 5 MG, QD
     Route: 048
  7. PREDNISONE. [Concomitant]
     Active Substance: PREDNISONE
     Indication: PRODUCT USED FOR UNKNOWN INDICATION
     Dosage: 7 MG, QD
     Route: 048
  8. PREDNISONE. [Concomitant]
     Active Substance: PREDNISONE
     Dosage: 6.75 MG, QD
     Route: 048
  9. METHOTREXATE. [Suspect]
     Active Substance: METHOTREXATE
     Indication: PRODUCT USED FOR UNKNOWN INDICATION
     Dosage: UNK
     Route: 065
  10. CEPHALOSPORIN NOS [Suspect]
     Active Substance: UNSPECIFIED INGREDIENT
     Indication: PRODUCT USED FOR UNKNOWN INDICATION
     Dosage: 7 MG, QD
     Route: 065

REACTIONS (22)
  - Respiratory failure [Unknown]
  - Hypoxia [Unknown]
  - Pneumonia lipoid [Unknown]
  - Drug ineffective [Unknown]
  - Pyrexia [Unknown]
  - Tachypnoea [Unknown]
  - Metapneumovirus infection [Unknown]
  - Dyspnoea [Unknown]
  - Breath sounds abnormal [Unknown]
  - Megacolon [Unknown]
  - Clubbing [Unknown]
  - Respiratory syncytial virus infection [Unknown]
  - Viral infection [Unknown]
  - Alveolar proteinosis [Unknown]
  - Lung disorder [Fatal]
  - Pneumonia viral [Unknown]
  - Pseudomonas infection [Unknown]
  - Lung infection [Unknown]
  - Cyst [Recovered/Resolved]
  - Ill-defined disorder [Unknown]
  - Adenovirus infection [Unknown]
  - Rash macular [Unknown]
